FAERS Safety Report 6731781-X (Version None)
Quarter: 2010Q2

REPORT INFORMATION
  Report Type: 
  Country: None (occurrence: None)
  Receive Date: 20100519
  Receipt Date: 20100507
  Transmission Date: 20101027
  Serious: Yes (Other)
  Sender: FDA-Public Use
  Company Number: US-PFIZER INC-2010058130

PATIENT
  Sex: Female
  Weight: 91 kg

DRUGS (12)
  1. AROMASIN [Suspect]
     Indication: BREAST CANCER
     Dosage: 25 MG, DAILY
     Route: 048
     Dates: start: 20050101, end: 20061001
  2. AROMASIN [Suspect]
     Dosage: 25 MG, 1X/DAY
     Dates: start: 20090201, end: 20100101
  3. AROMASIN [Suspect]
     Dosage: 25 MG, 1X/DAY
     Dates: start: 20100301
  4. BUPROPION [Concomitant]
     Dosage: 150 MG, 2X/DAY
  5. METOPROLOL [Concomitant]
     Dosage: 100 MG, 2X/DAY
  6. OMEPRAZOLE [Concomitant]
     Indication: DYSPEPSIA
     Dosage: 40 MG, DAILY
  7. TRAMADOL [Concomitant]
     Dosage: UNK
  8. ZOLEDRONIC ACID [Concomitant]
     Dosage: UNK
  9. GLUCOSAMINE [Concomitant]
     Dosage: UNK
  10. CHONDROITIN [Concomitant]
  11. VITAMIN D [Concomitant]
     Dosage: 2000 IU, DAILY
  12. CALCIUM CITRATE [Concomitant]
     Dosage: UNK, DAILY

REACTIONS (6)
  - ARTHROPATHY [None]
  - BLOOD CHOLESTEROL INCREASED [None]
  - HEPATIC STEATOSIS [None]
  - LOCAL SWELLING [None]
  - OSTEOPENIA [None]
  - OSTEOPOROSIS [None]
